FAERS Safety Report 5247156-9 (Version None)
Quarter: 2007Q1

REPORT INFORMATION
  Report Type: 
  Country: None (occurrence: None)
  Receive Date: 20070221
  Receipt Date: 20070207
  Transmission Date: 20070707
  Serious: Yes (Other)
  Sender: FDA-Public Use
  Company Number: 2007-00151

PATIENT
  Age: 71 Year
  Sex: Female
  Weight: 93 kg

DRUGS (5)
  1. VELCADE [Suspect]
     Indication: MULTIPLE MYELOMA
     Dosage: 1.30 MG/M2, INTRAVENOUS
     Route: 042
     Dates: start: 20060109, end: 20061002
  2. AROMASIN [Concomitant]
  3. ZIAC [Concomitant]
  4. KYTRIL [Concomitant]
  5. ZOMETA [Concomitant]

REACTIONS (3)
  - DEHYDRATION [None]
  - DIARRHOEA [None]
  - WEIGHT DECREASED [None]
